FAERS Safety Report 8609100 (Version 4)
Quarter: 2018Q4

REPORT INFORMATION
  Report Type: Spontaneous
  Country: FR (occurrence: FR)
  Receive Date: 20120611
  Receipt Date: 20181120
  Transmission Date: 20190205
  Serious: Yes (Hospitalization, Other)
  Sender: FDA-Public Use
  Company Number: FR-PFIZER INC-2012134372

PATIENT
  Age: 72 Year
  Sex: Female

DRUGS (12)
  1. AMISULPRIDE [Suspect]
     Active Substance: AMISULPRIDE
     Indication: HALLUCINATION
     Dosage: 25 MG, 2X/DAY
     Route: 048
     Dates: start: 1990, end: 20120120
  2. LOSARTAN. [Concomitant]
     Active Substance: LOSARTAN
     Dosage: UNK
  3. TERCIAN [Suspect]
     Active Substance: CYAMEMAZINE
     Indication: HALLUCINATION
     Dosage: 0.5 DF, 1X/DAY
     Route: 048
     Dates: start: 1990, end: 20120120
  4. PARKINANE [Concomitant]
     Active Substance: TRIHEXYPHENIDYL HYDROCHLORIDE
     Dosage: UNK
  5. DAFALGAN [Concomitant]
     Active Substance: ACETAMINOPHEN
     Dosage: UNK
  6. SMECTA [Concomitant]
     Active Substance: MONTMORILLONITE
     Dosage: UNK
  7. PANTOPRAZOLE [Concomitant]
     Active Substance: PANTOPRAZOLE
     Dosage: UNK
  8. ACEBUTOLOL [Concomitant]
     Active Substance: ACEBUTOLOL
     Dosage: UNK
  9. ZOLPIDEM [Suspect]
     Active Substance: ZOLPIDEM\ZOLPIDEM TARTRATE
     Dosage: UNK
     Route: 048
     Dates: start: 1990
  10. XANAX [Suspect]
     Active Substance: ALPRAZOLAM
     Dosage: UNK
     Route: 048
     Dates: start: 1990, end: 20120202
  11. ARESTAL [Concomitant]
     Active Substance: LOPERAMIDE OXIDE
     Dosage: UNK
  12. CITALOPRAM [Concomitant]
     Active Substance: CITALOPRAM HYDROBROMIDE
     Dosage: UNK

REACTIONS (9)
  - Extrapyramidal disorder [Recovered/Resolved]
  - Condition aggravated [Recovered/Resolved]
  - Dyskinesia [Recovered/Resolved]
  - Cerebral ischaemia [Unknown]
  - Dysarthria [Unknown]
  - Fall [Recovered/Resolved]
  - Injury [Unknown]
  - Balance disorder [Recovered/Resolved]
  - Sleep apnoea syndrome [Recovered/Resolved]

NARRATIVE: CASE EVENT DATE: 201201
